FAERS Safety Report 7928605-1 (Version None)
Quarter: 2011Q4

REPORT INFORMATION
  Report Type: 
  Country: None (occurrence: None)
  Receive Date: 20111118
  Receipt Date: 20111109
  Transmission Date: 20120403
  Serious: Yes (Other)
  Sender: FDA-Public Use
  Company Number: CA-COVIDIEN/TYCO HEALTHCARE/MALLINCKRODT-T201102601

PATIENT
  Age: 58 Year
  Sex: Female

DRUGS (1)
  1. SODIUM IODIDE I 131 [Suspect]
     Dosage: UNK

REACTIONS (4)
  - METASTASES TO HEART [None]
  - METASTASES TO LYMPH NODES [None]
  - DISEASE PROGRESSION [None]
  - METASTASES TO LUNG [None]
